FAERS Safety Report 16953010 (Version 1)
Quarter: 2019Q4

REPORT INFORMATION
  Report Type: Spontaneous
  Country: US (occurrence: US)
  Receive Date: 20191023
  Receipt Date: 20191023
  Transmission Date: 20200122
  Serious: No
  Sender: FDA-Public Use
  Company Number: US-BAYER-2019-190961

PATIENT
  Age: 85 Year
  Sex: Male
  Weight: 100 kg

DRUGS (1)
  1. MIRALAX [Suspect]
     Active Substance: POLYETHYLENE GLYCOL 3350
     Indication: GASTROINTESTINAL DISORDER
     Dosage: 17G WITH 4OZ-8OZ BEVERAGE
     Route: 048
     Dates: start: 20191020

REACTIONS (2)
  - Drug ineffective [Unknown]
  - Faeces hard [Unknown]

NARRATIVE: CASE EVENT DATE: 20191020
